FAERS Safety Report 20716366 (Version 1)
Quarter: 2022Q2

REPORT INFORMATION
  Report Type: Spontaneous
  Country: US (occurrence: US)
  Receive Date: 20220416
  Receipt Date: 20220416
  Transmission Date: 20220720
  Serious: No
  Sender: FDA-Public Use
  Company Number: US-ALLERGAN-2141090US

PATIENT
  Age: 28 Year
  Sex: Female

DRUGS (7)
  1. LILETTA [Suspect]
     Active Substance: LEVONORGESTREL
     Indication: Heavy menstrual bleeding
     Dosage: 52 MG, SINGLE
     Route: 015
     Dates: start: 20211018, end: 20211124
  2. ESCITALOPRAM [Concomitant]
     Active Substance: ESCITALOPRAM OXALATE
  3. HYDROXYZINE [Concomitant]
     Active Substance: HYDROXYZINE HYDROCHLORIDE
  4. METFORMIN [Concomitant]
     Active Substance: METFORMIN HYDROCHLORIDE
  5. CETIRIZINE [Suspect]
     Active Substance: CETIRIZINE HYDROCHLORIDE
     Indication: Hypersensitivity
  6. VITAMIN D NOS [Suspect]
     Active Substance: VITAMIN D NOS
  7. FISH OIL [Concomitant]
     Active Substance: FISH OIL

REACTIONS (2)
  - Off label use [Unknown]
  - Device expulsion [Recovered/Resolved]

NARRATIVE: CASE EVENT DATE: 20211018
